FAERS Safety Report 7419147-0 (Version None)
Quarter: 2011Q2

REPORT INFORMATION
  Report Type: 
  Country: None (occurrence: None)
  Receive Date: 20110415
  Receipt Date: 20110411
  Transmission Date: 20111010
  Serious: Yes (Death, Other)
  Sender: FDA-Public Use
  Company Number: US-GENZYME-FLUD-1001060

PATIENT
  Age: 55 Year

DRUGS (16)
  1. THYMOGLOBULIN [Suspect]
     Indication: STEM CELL TRANSPLANT
  2. DECITABINE [Suspect]
     Dosage: 20 MG/M2, QD
     Route: 042
  3. BUSULFAN [Suspect]
     Indication: STEM CELL TRANSPLANT
  4. BUSULFAN [Suspect]
     Indication: MYELODYSPLASTIC SYNDROME
     Dosage: 130 MG/M2, QDX2
     Route: 065
  5. TACROLIMUS [Concomitant]
     Indication: PROPHYLAXIS AGAINST GRAFT VERSUS HOST DISEASE
     Dosage: UNK
     Route: 065
  6. DECITABINE [Suspect]
     Dosage: 20 MG/M2, QD
     Route: 042
  7. METHOTREXATE [Concomitant]
     Indication: PROPHYLAXIS AGAINST GRAFT VERSUS HOST DISEASE
     Dosage: UNK
     Route: 065
  8. FLUDARA [Suspect]
     Indication: STEM CELL TRANSPLANT
  9. DECITABINE [Suspect]
     Dosage: 20 MG/M2, QD
     Route: 042
  10. THYMOGLOBULIN [Suspect]
     Indication: MYELODYSPLASTIC SYNDROME
     Dosage: UNK
     Route: 065
  11. DECITABINE [Suspect]
     Indication: MYELODYSPLASTIC SYNDROME
     Dosage: 20 MG/M2, QD
     Route: 042
  12. DECITABINE [Suspect]
     Dosage: 20 MG/M2, QD
     Route: 042
  13. DECITABINE [Suspect]
     Dosage: 20 MG/M2, QD
     Route: 042
  14. DECITABINE [Suspect]
     Dosage: 20 MG/M2, QD
     Route: 042
  15. FLUDARA [Suspect]
     Indication: MYELODYSPLASTIC SYNDROME
     Dosage: 40 MG/M2, QDX4
     Route: 065
  16. DECITABINE [Suspect]
     Dosage: 20 MG/M2, QD
     Route: 042

REACTIONS (5)
  - ACUTE GRAFT VERSUS HOST DISEASE IN SKIN [None]
  - DEATH [None]
  - VOMITING [None]
  - NAUSEA [None]
  - DIARRHOEA [None]
